FAERS Safety Report 13767108 (Version 5)
Quarter: 2017Q3

REPORT INFORMATION
  Report Type: Spontaneous
  Country: US (occurrence: US)
  Receive Date: 20170719
  Receipt Date: 20170830
  Transmission Date: 20171127
  Serious: No
  Sender: FDA-Public Use
  Company Number: US-GLAXOSMITHKLINE-US2017110700

PATIENT
  Sex: Male
  Weight: 103.86 kg

DRUGS (1)
  1. TANZEUM [Suspect]
     Active Substance: ALBIGLUTIDE
     Indication: PRODUCT USED FOR UNKNOWN INDICATION
     Dosage: 50 MG, WE
     Route: 042
     Dates: start: 201609

REACTIONS (3)
  - Product quality issue [Unknown]
  - Device leakage [Unknown]
  - Wrong technique in device usage process [Not Recovered/Not Resolved]
